FAERS Safety Report 10065405 (Version 1)
Quarter: 2014Q2

REPORT INFORMATION
  Report Type: Spontaneous
  Country: US (occurrence: US)
  Receive Date: 20140408
  Receipt Date: 20140408
  Transmission Date: 20141212
  Serious: Yes (Other)
  Sender: FDA-Public Use
  Company Number: US-GLAXOSMITHKLINE-A1068365A

PATIENT
  Sex: Male

DRUGS (1)
  1. PROMACTA [Suspect]
     Indication: PLATELET COUNT DECREASED
     Dosage: 25MG UNKNOWN
     Route: 065
     Dates: start: 20140324

REACTIONS (4)
  - Depressed level of consciousness [Unknown]
  - Hepatic pain [Unknown]
  - Dizziness [Unknown]
  - Disorientation [Unknown]
